FAERS Safety Report 5348452-7 (Version None)
Quarter: 2007Q2

REPORT INFORMATION
  Report Type: 
  Country: None (occurrence: None)
  Receive Date: 20070605
  Receipt Date: 20070528
  Transmission Date: 20071010
  Serious: Yes (Hospitalization)
  Sender: FDA-Public Use
  Company Number: 2007JP002108

PATIENT
  Age: 78 Year
  Sex: Female

DRUGS (6)
  1. VESICARE [Suspect]
     Indication: HYPERTONIC BLADDER
     Dosage: 5 MG, UID/QD, ORAL
     Route: 048
  2. NORVASC (AMLODIPINE BESILATE) PER ORAL NOS [Concomitant]
  3. DIOVAN (VALSARTAN) PER ORAL NOS [Concomitant]
  4. PRORENAL (LIMAPROST) PER ORAL NOS [Concomitant]
  5. JUVELA NICOTINATE (TOCOPHERYL NICOTINATE) PER ORAL NOS [Concomitant]
  6. EPADEL (ETHYL ICOSAPENTATE) CAPSULE [Concomitant]

REACTIONS (1)
  - PYELONEPHRITIS ACUTE [None]
